FAERS Safety Report 5628959-5 (Version None)
Quarter: 2008Q1

REPORT INFORMATION
  Report Type: 
  Country: None (occurrence: None)
  Receive Date: 20080214
  Receipt Date: 20080208
  Transmission Date: 20080703
  Serious: Yes (Other)
  Sender: FDA-Public Use
  Company Number: 2008SP002969

PATIENT
  Age: 17 Year
  Sex: Female

DRUGS (1)
  1. CORICIDIN COUGH + COLD [Suspect]
     Indication: DRUG ABUSE
     Dosage: PO
     Route: 048
     Dates: start: 20071201

REACTIONS (1)
  - INCORRECT DOSE ADMINISTERED [None]
